FAERS Safety Report 7950726-8 (Version None)
Quarter: 2011Q4

REPORT INFORMATION
  Report Type: 
  Country: None (occurrence: None)
  Receive Date: 20111123
  Receipt Date: 20111114
  Transmission Date: 20120403
  Serious: No
  Sender: FDA-Public Use
  Company Number: 1110606

PATIENT
  Sex: Female

DRUGS (4)
  1. FENTANYL CITRATE [Concomitant]
  2. FENTANYL CITRATE [Suspect]
     Indication: ANALGESIC THERAPY
     Dosage: INTRATHECAL
     Route: 037
  3. BUPIVACAINE HCL [Suspect]
     Indication: ANALGESIC THERAPY
     Dosage: INTRATHECAL
     Route: 037
  4. BUPIVACAINE HCL [Concomitant]

REACTIONS (2)
  - PAIN [None]
  - HYPOAESTHESIA [None]
